FAERS Safety Report 15900286 (Version 10)
Quarter: 2019Q3

REPORT INFORMATION
  Report Type: Spontaneous
  Country: BR (occurrence: BR)
  Receive Date: 20190201
  Receipt Date: 20190828
  Transmission Date: 20191004
  Serious: Yes (Death, Life-Threatening, Hospitalization, Other)
  Sender: FDA-Public Use
  Company Number: BR-ALEXION PHARMACEUTICALS INC.-A201901555

PATIENT
  Age: 24 Year
  Sex: Female

DRUGS (11)
  1. SOLIRIS [Suspect]
     Active Substance: ECULIZUMAB
     Indication: PAROXYSMAL NOCTURNAL HAEMOGLOBINURIA
     Dosage: UNK
     Route: 042
     Dates: start: 2014, end: 2014
  2. SOLIRIS [Suspect]
     Active Substance: ECULIZUMAB
     Dosage: 900 MG, Q2W
     Route: 042
     Dates: start: 20150112
  3. SOLIRIS [Suspect]
     Active Substance: ECULIZUMAB
     Dosage: 1200 MG, UNK
     Route: 065
     Dates: end: 20190506
  4. SOLIRIS [Suspect]
     Active Substance: ECULIZUMAB
     Dosage: 900 MG, Q2W
     Route: 042
     Dates: start: 2014
  5. SOLIRIS [Suspect]
     Active Substance: ECULIZUMAB
     Dosage: 900 MG, EVERY 15 DAYS
     Route: 042
     Dates: start: 20181206
  6. SOLIRIS [Suspect]
     Active Substance: ECULIZUMAB
     Dosage: 1200 MG (4 VIALS) DUE TO PREGNANCY, UNK
     Route: 065
  7. SOLIRIS [Suspect]
     Active Substance: ECULIZUMAB
     Dosage: 600 MG, QW
     Route: 042
     Dates: start: 20141215, end: 20150105
  8. SOLIRIS [Suspect]
     Active Substance: ECULIZUMAB
     Dosage: 4 VIALS DUE TO PREGNANCY, UNK
     Route: 065
  9. SOLIRIS [Suspect]
     Active Substance: ECULIZUMAB
     Dosage: 900 MG, Q2W
     Route: 042
  10. FOLIC ACID. [Concomitant]
     Active Substance: FOLIC ACID
     Indication: MINERAL SUPPLEMENTATION
     Dosage: 1 TAB, QD
     Route: 065
     Dates: start: 2014
  11. SOLIRIS [Suspect]
     Active Substance: ECULIZUMAB
     Dosage: 600 MG, QW
     Route: 042

REACTIONS (21)
  - Thrombosis [Fatal]
  - Apparent death [Unknown]
  - Malaise [Not Recovered/Not Resolved]
  - Complication of pregnancy [Unknown]
  - Anaemia [Unknown]
  - Fatigue [Unknown]
  - Pre-eclampsia [Recovered/Resolved]
  - Suture rupture [Unknown]
  - Inappropriate schedule of product administration [Unknown]
  - Breast engorgement [Unknown]
  - Asthenia [Unknown]
  - Pyrexia [Unknown]
  - Chromaturia [Unknown]
  - Renal disorder [Unknown]
  - Haemolysis [Unknown]
  - Infection [Fatal]
  - Blood lactate dehydrogenase increased [Unknown]
  - Platelet count decreased [Unknown]
  - Pallor [Recovering/Resolving]
  - Exposure during pregnancy [Recovered/Resolved]
  - Dysuria [Unknown]

NARRATIVE: CASE EVENT DATE: 2019
